FAERS Safety Report 7163915-X (Version None)
Quarter: 2010Q4

REPORT INFORMATION
  Report Type: 
  Country: None (occurrence: None)
  Receive Date: 20101210
  Receipt Date: 20101210
  Transmission Date: 20110411
  Serious: Yes (Hospitalization)
  Sender: FDA-Public Use
  Company Number: None

PATIENT
  Sex: Female
  Weight: 82.5547 kg

DRUGS (9)
  1. AVASTIN [Suspect]
     Indication: NON-SMALL CELL LUNG CANCER
     Dosage: 5 MG D-14 + D1 Q21 D
     Dates: start: 20090511, end: 20101115
  2. ABRAXANE [Suspect]
     Dosage: 100MG D1,8,15
     Dates: start: 20090526, end: 20090817
  3. CARBOPLATIN [Suspect]
     Dosage: D1 Q 21 DAYS
     Dates: start: 20090529, end: 20090803
  4. ALBUTEROL [Concomitant]
  5. AZITHROMYCIN [Concomitant]
  6. CELEXA [Concomitant]
  7. ROBITUSSIN AC (GUAIFENESIN AC) [Concomitant]
  8. SIMVASTATIN [Concomitant]
  9. SPIRIVA [Concomitant]

REACTIONS (4)
  - BACK PAIN [None]
  - COUGH [None]
  - INFECTION [None]
  - OROPHARYNGEAL PAIN [None]
